FAERS Safety Report 7102494-X (Version None)
Quarter: 2010Q4

REPORT INFORMATION
  Report Type: 
  Country: None (occurrence: None)
  Receive Date: 20101115
  Receipt Date: 20101105
  Transmission Date: 20110411
  Serious: Yes (Life-Threatening, Hospitalization)
  Sender: FDA-Public Use
  Company Number: JP-ROCHE-738096

PATIENT
  Sex: Female

DRUGS (10)
  1. ACTEMRA [Suspect]
     Indication: RHEUMATOID ARTHRITIS
     Route: 041
     Dates: start: 20100803, end: 20101007
  2. PREDNISOLONE [Suspect]
     Route: 048
     Dates: start: 20100615, end: 20100625
  3. PREDNISOLONE [Suspect]
     Route: 048
     Dates: start: 20100626, end: 20100713
  4. PREDNISOLONE [Suspect]
     Route: 048
     Dates: start: 20100714
  5. AZULFIDINE [Concomitant]
     Route: 048
     Dates: start: 20100707
  6. TAKEPRON [Concomitant]
     Route: 048
     Dates: start: 20100612
  7. ROCALTROL [Concomitant]
     Route: 048
  8. MAGLAX [Concomitant]
     Route: 048
     Dates: start: 20100907
  9. ASPARA-CA [Concomitant]
     Route: 048
     Dates: start: 20100612
  10. KETOPROFEN [Concomitant]
     Dosage: FORM: TAPE
     Route: 062

REACTIONS (3)
  - DISSEMINATED INTRAVASCULAR COAGULATION [None]
  - PYELONEPHRITIS [None]
  - SEPTIC SHOCK [None]
